FAERS Safety Report 10209233 (Version 1)
Quarter: 2014Q2

REPORT INFORMATION
  Report Type: Report from Study
  Country: US (occurrence: US)
  Receive Date: 20140530
  Receipt Date: 20140530
  Transmission Date: 20141212
  Serious: Yes (Hospitalization)
  Sender: FDA-Public Use
  Company Number: US-ABBVIE-14P-163-1242361-00

PATIENT
  Age: 79 Year
  Sex: Female

DRUGS (6)
  1. HUMIRA [Suspect]
     Indication: RHEUMATOID ARTHRITIS
     Dates: start: 2010
  2. FENTANYL [Concomitant]
     Indication: ARTHRALGIA
  3. HYDROCODONE [Concomitant]
     Indication: ARTHRALGIA
     Dosage: 10/375MG, 1 IN MORNING, 1 AT NIGHT
  4. ATENOLOL [Concomitant]
     Indication: HYPERTENSION
     Dosage: DAILY
  5. CALCIUM [Concomitant]
     Indication: PRODUCT USED FOR UNKNOWN INDICATION
     Dosage: DAILY
  6. ASPIRIN [Concomitant]
     Indication: THROMBOSIS PROPHYLAXIS
     Dosage: DAILY

REACTIONS (5)
  - Bursal fluid accumulation [Unknown]
  - Joint swelling [Not Recovered/Not Resolved]
  - Bursitis infective staphylococcal [Unknown]
  - Arthralgia [Unknown]
  - Macular degeneration [Unknown]
